FAERS Safety Report 6290574-0 (Version None)
Quarter: 2009Q3

REPORT INFORMATION
  Report Type: 
  Country: None (occurrence: None)
  Receive Date: 20090730
  Receipt Date: 20090720
  Transmission Date: 20100115
  Serious: Yes (Hospitalization)
  Sender: FDA-Public Use
  Company Number: FR-CELGENEUS-056-C5013-09050808

PATIENT
  Sex: Male
  Weight: 84 kg

DRUGS (11)
  1. THALIDOMIDE [Suspect]
     Indication: MULTIPLE MYELOMA
     Route: 048
     Dates: start: 20090130
  2. THALIDOMIDE [Suspect]
     Route: 048
     Dates: start: 20090424, end: 20090529
  3. THALIDOMIDE [Suspect]
     Route: 048
     Dates: start: 20090605
  4. MELPHALAN [Suspect]
     Indication: MULTIPLE MYELOMA
     Route: 065
     Dates: start: 20090130
  5. MELPHALAN [Suspect]
     Route: 065
     Dates: start: 20090424, end: 20090427
  6. PREDNISONE [Suspect]
     Indication: MULTIPLE MYELOMA
     Route: 065
     Dates: start: 20090130
  7. PREDNISONE [Suspect]
     Route: 065
     Dates: start: 20090425, end: 20090428
  8. DAFALGAN [Concomitant]
     Route: 048
     Dates: start: 20090110, end: 20090120
  9. ASPEGIC 1000 [Concomitant]
     Indication: PROPHYLAXIS
     Route: 048
     Dates: start: 20090130
  10. MOPRAL [Concomitant]
     Indication: PROPHYLAXIS
     Route: 048
     Dates: start: 20090130
  11. DIFFU K [Concomitant]
     Indication: PROPHYLAXIS
     Route: 048
     Dates: start: 20090130

REACTIONS (2)
  - LOSS OF CONSCIOUSNESS [None]
  - SINOATRIAL BLOCK [None]
